FAERS Safety Report 5505910-X (Version None)
Quarter: 2007Q4

REPORT INFORMATION
  Report Type: 
  Country: None (occurrence: None)
  Receive Date: 20071102
  Receipt Date: 20071029
  Transmission Date: 20080405
  Serious: Yes (Life-Threatening, Hospitalization)
  Sender: FDA-Public Use
  Company Number: US-PFIZER INC-2007090833

PATIENT
  Sex: Male

DRUGS (9)
  1. MARAVIROC [Suspect]
     Indication: HIV TEST POSITIVE
     Route: 048
  2. TRUVADA [Concomitant]
     Route: 048
  3. VALTREX [Concomitant]
     Route: 048
     Dates: start: 20030401
  4. TAMSULOSIN HYDROCHLORIDE [Concomitant]
     Route: 048
     Dates: start: 20060116
  5. LYRICA [Concomitant]
     Route: 048
     Dates: start: 20060627
  6. CLARITIN [Concomitant]
     Route: 048
     Dates: start: 20060913
  7. FUZEON [Concomitant]
     Route: 058
     Dates: start: 20060130
  8. NORVIR [Concomitant]
     Route: 048
     Dates: start: 20060130
  9. INVIRASE [Concomitant]
     Route: 048
     Dates: start: 20060130

REACTIONS (1)
  - ACUTE LEUKAEMIA [None]
